FAERS Safety Report 4354731-2 (Version None)
Quarter: 2004Q2

REPORT INFORMATION
  Report Type: 
  Country: None (occurrence: None)
  Receive Date: 20040507
  Receipt Date: 20031118
  Transmission Date: 20050107
  Serious: Yes (Hospitalization)
  Sender: FDA-Public Use
  Company Number: DE-ROCHE-352191

PATIENT
  Age: 69 Year
  Sex: Female
  Weight: 70.2 kg

DRUGS (4)
  1. IBANDRONIC ACID [Suspect]
     Dosage: LOADING DOSE
     Route: 042
     Dates: start: 20030618, end: 20030618
  2. IBANDRONIC ACID [Suspect]
     Dosage: MAINTENANCE DOSE
     Route: 048
     Dates: start: 20030619, end: 20031030
  3. THYROXINE [Concomitant]
     Dates: start: 19931015
  4. FEMARA [Concomitant]
     Dates: start: 20010515, end: 20030509

REACTIONS (12)
  - ALANINE AMINOTRANSFERASE INCREASED [None]
  - ARTHRALGIA [None]
  - ASPARTATE AMINOTRANSFERASE INCREASED [None]
  - BLOOD ALKALINE PHOSPHATASE INCREASED [None]
  - BLOOD CALCIUM INCREASED [None]
  - BLOOD GLUCOSE DECREASED [None]
  - BLOOD LACTATE DEHYDROGENASE INCREASED [None]
  - BLOOD SODIUM DECREASED [None]
  - C-REACTIVE PROTEIN INCREASED [None]
  - GAMMA-GLUTAMYLTRANSFERASE INCREASED [None]
  - HAEMOGLOBIN DECREASED [None]
  - PAIN IN EXTREMITY [None]
